FAERS Safety Report 14161717 (Version 1)
Quarter: 2017Q4

REPORT INFORMATION
  Report Type: Spontaneous
  Country: US (occurrence: US)
  Receive Date: 20171105
  Receipt Date: 20171105
  Transmission Date: 20180321
  Serious: No
  Sender: FDA-Public Use
  Company Number: None

PATIENT
  Age: 7 Year
  Sex: Male
  Weight: 27.45 kg

DRUGS (3)
  1. DEPAKOTE [Concomitant]
     Active Substance: DIVALPROEX SODIUM
  2. DESMOPRESSIN ACETATE. [Suspect]
     Active Substance: DESMOPRESSIN ACETATE
     Indication: ENURESIS
     Dosage: ?          QUANTITY:63 TABLET(S);?
     Route: 048
     Dates: start: 20171102, end: 20171104
  3. EVEKEO [Concomitant]
     Active Substance: AMPHETAMINE SULFATE

REACTIONS (3)
  - Irritability [None]
  - Mania [None]
  - Mental status changes [None]

NARRATIVE: CASE EVENT DATE: 20171105
